FAERS Safety Report 10207963 (Version 1)
Quarter: 2014Q2

REPORT INFORMATION
  Report Type: Spontaneous
  Country: US (occurrence: US)
  Receive Date: 20140530
  Receipt Date: 20140530
  Transmission Date: 20141212
  Serious: No
  Sender: FDA-Public Use
  Company Number: US-GLAXOSMITHKLINE-A1066087A

PATIENT
  Age: 72 Year
  Sex: Female

DRUGS (3)
  1. VENTOLIN [Suspect]
     Indication: MULTIPLE ALLERGIES
     Route: 055
     Dates: start: 20140301, end: 20140301
  2. NATURE-THROID [Concomitant]
  3. ACETYLMETHIONINE [Concomitant]
     Route: 055

REACTIONS (10)
  - Dyspnoea [Unknown]
  - Throat irritation [Unknown]
  - Oxygen saturation decreased [Unknown]
  - Throat tightness [Unknown]
  - Dysphagia [Unknown]
  - Cheilitis [Unknown]
  - Lip oedema [Unknown]
  - Headache [Unknown]
  - Tremor [Unknown]
  - Blood pressure decreased [Unknown]
